FAERS Safety Report 6077667-8 (Version None)
Quarter: 2009Q1

REPORT INFORMATION
  Report Type: 
  Country: None (occurrence: None)
  Receive Date: 20090126
  Receipt Date: 20081002
  Transmission Date: 20090719
  Serious: Yes (Other)
  Sender: FDA-Public Use
  Company Number: WAES 0810USA00413

PATIENT
  Sex: 0

DRUGS (1)
  1. PRIMAXIN [Suspect]
     Dosage: IV
     Route: 042
     Dates: start: 20081001

REACTIONS (1)
  - DEAFNESS [None]
